FAERS Safety Report 9808095 (Version 1)
Quarter: 2014Q1

REPORT INFORMATION
  Report Type: Spontaneous
  Country: SE (occurrence: SE)
  Receive Date: 20140110
  Receipt Date: 20140110
  Transmission Date: 20141002
  Serious: Yes (Other)
  Sender: FDA-Public Use
  Company Number: SE-PFIZER INC-2014004197

PATIENT
  Age: 60 Year
  Sex: Female

DRUGS (2)
  1. SALAZOPYRIN [Suspect]
     Dosage: 2000 MG, UNK
     Dates: start: 20131113, end: 20131120
  2. PREDNISOLONE [Concomitant]
     Dates: start: 20130724

REACTIONS (5)
  - Hypersensitivity [Recovered/Resolved]
  - Eye swelling [Recovered/Resolved]
  - Erythema [Recovered/Resolved]
  - Swelling face [Recovered/Resolved]
  - Burning sensation [Recovered/Resolved]
